FAERS Safety Report 4880934-4 (Version None)
Quarter: 2005Q4

REPORT INFORMATION
  Report Type: 
  Country: None (occurrence: None)
  Receive Date: 20051223
  Receipt Date: 20050928
  Transmission Date: 20060501
  Serious: No
  Sender: FDA-Public Use
  Company Number: 05P-163-0312254-00

PATIENT
  Age: 60 Year
  Sex: Male
  Weight: 82.5547 kg

DRUGS (2)
  1. HUMIRA [Suspect]
     Indication: RHEUMATOID ARTHRITIS
     Dosage: 40 MG, 1 IN 2 WK, SUBCUTANEOUS
     Route: 058
     Dates: start: 20050601, end: 20050914
  2. PREDNISONE [Concomitant]

REACTIONS (6)
  - ABASIA [None]
  - ERYTHEMA [None]
  - JOINT SWELLING [None]
  - PRURITUS [None]
  - SKIN LESION [None]
  - STAPHYLOCOCCAL INFECTION [None]
